FAERS Safety Report 5542550-0 (Version None)
Quarter: 2007Q4

REPORT INFORMATION
  Report Type: 
  Country: None (occurrence: None)
  Receive Date: 20071123
  Receipt Date: 20070816
  Transmission Date: 20080405
  Serious: Yes (Other)
  Sender: FDA-Public Use
  Company Number: US-JNJFOC-20070702632

PATIENT
  Age: 72 Year
  Sex: Male

DRUGS (8)
  1. LEVAQUIN [Suspect]
     Indication: DIVERTICULITIS
     Dosage: 500 MG, 1 IN 1 DAY, ORAL
     Route: 048
     Dates: start: 20070629, end: 20070701
  2. PREDNISONE (PREDNISONE) TABLET [Concomitant]
  3. THEOPHYLLINE (THEOPHYLLINE) UNSPECIFIED [Concomitant]
  4. ALBUTEROL (SALBUTAMOL) UNSPECIFIED [Concomitant]
  5. ADVAIR (SERETIDE MITE) UNSPECIFIED [Concomitant]
  6. PRILOSEC (OMEPRAZOLE) UNSPECIFIED [Concomitant]
  7. BENICAR (OLMESARTAN) UNSPECIFIED [Concomitant]
  8. CELEBREX (CELECOXIB) UNSPECIFIED [Concomitant]

REACTIONS (2)
  - TENDON RUPTURE [None]
  - TENDONITIS [None]
